FAERS Safety Report 13013833 (Version 1)
Quarter: 2016Q4

REPORT INFORMATION
  Report Type: Spontaneous
  Country: US (occurrence: US)
  Receive Date: 20161209
  Receipt Date: 20161209
  Transmission Date: 20170207
  Serious: No
  Sender: FDA-Public Use
  Company Number: US-FERRINGPH-2016FE00416

PATIENT
  Age: 33 Year
  Sex: Female
  Weight: 58.96 kg

DRUGS (6)
  1. GANIRELIX [Concomitant]
     Active Substance: GANIRELIX
     Indication: IN VITRO FERTILISATION
  2. ESTRACE [Concomitant]
     Active Substance: ESTRADIOL
     Indication: IN VITRO FERTILISATION
  3. MENOPUR [Suspect]
     Active Substance: FOLLICLE STIMULATING HORMONE BETA POLYPEPTIDE\LUTROPIN ALFA
     Indication: IN VITRO FERTILISATION
     Dosage: 4 VIALS OF 75 UNITS ONCE DAILY
     Route: 058
     Dates: start: 201503
  4. MENOPUR [Suspect]
     Active Substance: FOLLICLE STIMULATING HORMONE BETA POLYPEPTIDE\LUTROPIN ALFA
     Dosage: 4 VIALS OF 75 UNITS ONCE DAILY
     Route: 058
     Dates: start: 201509
  5. FOLLISTIM [Concomitant]
     Active Substance: FOLLITROPIN
     Indication: IN VITRO FERTILISATION
  6. NOVAREL [Concomitant]
     Active Substance: CHORIOGONADOTROPIN ALFA
     Indication: IN VITRO FERTILISATION

REACTIONS (2)
  - Drug ineffective [Unknown]
  - Drug ineffective [Unknown]

NARRATIVE: CASE EVENT DATE: 201503
